FAERS Safety Report 8045579-6 (Version None)
Quarter: 2012Q1

REPORT INFORMATION
  Report Type: 
  Country: None (occurrence: None)
  Receive Date: 20120113
  Receipt Date: 20120109
  Transmission Date: 20120608
  Serious: Yes (Hospitalization, Other)
  Sender: FDA-Public Use
  Company Number: US-MERCK-0903USA01374

PATIENT
  Age: 54 Year
  Sex: Female
  Weight: 72 kg

DRUGS (3)
  1. FOSAMAX [Suspect]
     Indication: OSTEOPOROSIS
     Route: 048
     Dates: start: 20010101, end: 20080501
  2. FOSAMAX [Suspect]
     Route: 048
     Dates: start: 19970718
  3. FOSAMAX [Suspect]
     Route: 048
     Dates: end: 20080610

REACTIONS (36)
  - HYPERGLYCAEMIA [None]
  - LIVER FUNCTION TEST ABNORMAL [None]
  - HYPERTENSION [None]
  - RENAL ATROPHY [None]
  - EXOSTOSIS [None]
  - PERIODONTAL DISEASE [None]
  - JAW DISORDER [None]
  - OSTEOMYELITIS [None]
  - HEPATIC STEATOSIS [None]
  - PANCREATITIS ACUTE [None]
  - FISTULA [None]
  - WEIGHT DECREASED [None]
  - PARAESTHESIA [None]
  - STOMATITIS [None]
  - GINGIVAL DISORDER [None]
  - PERIODONTITIS [None]
  - IMPAIRED HEALING [None]
  - HYPOAESTHESIA ORAL [None]
  - FISTULA DISCHARGE [None]
  - ADVERSE EVENT [None]
  - OSTEONECROSIS [None]
  - ABSCESS [None]
  - SYNOVIAL CYST [None]
  - MUCOSAL EROSION [None]
  - PAIN IN JAW [None]
  - BILE DUCT STONE [None]
  - RENAL CYST [None]
  - ORAL TORUS [None]
  - ORAL INFECTION [None]
  - CHOLELITHIASIS [None]
  - CYST [None]
  - TOOTH DISORDER [None]
  - EDENTULOUS [None]
  - OSTEONECROSIS OF JAW [None]
  - TRISMUS [None]
  - BONE LOSS [None]
